FAERS Safety Report 7602095-0 (Version None)
Quarter: 2011Q3

REPORT INFORMATION
  Report Type: 
  Country: None (occurrence: None)
  Receive Date: 20110711
  Receipt Date: 20110608
  Transmission Date: 20111222
  Serious: Yes (Hospitalization, Other)
  Sender: FDA-Public Use
  Company Number: PHHO2008DE02168

PATIENT
  Sex: Female
  Weight: 72 kg

DRUGS (4)
  1. ILARIS [Suspect]
     Indication: RHEUMATOID ARTHRITIS
     Dosage: 300 MG,
     Route: 058
     Dates: start: 20071203
  2. METHOTREXATE [Suspect]
     Indication: RHEUMATOID ARTHRITIS
     Dosage: 20 MG, QW
     Route: 048
     Dates: start: 19990101
  3. PREDNISONE [Concomitant]
     Indication: RHEUMATOID ARTHRITIS
  4. VOLTAREN [Concomitant]
     Indication: RHEUMATOID ARTHRITIS

REACTIONS (10)
  - APPENDICITIS [None]
  - DYSMENORRHOEA [None]
  - OVARIAN CYST [None]
  - PYREXIA [None]
  - NAUSEA [None]
  - ABDOMINAL TENDERNESS [None]
  - SCAN ABDOMEN ABNORMAL [None]
  - ABDOMINAL PAIN LOWER [None]
  - GALLBLADDER DISORDER [None]
  - METRORRHAGIA [None]
